FAERS Safety Report 7092650-1 (Version None)
Quarter: 2010Q4

REPORT INFORMATION
  Report Type: 
  Country: None (occurrence: None)
  Receive Date: 20101108
  Receipt Date: 20101108
  Transmission Date: 20110411
  Serious: No
  Sender: FDA-Public Use
  Company Number: None

PATIENT
  Sex: Female
  Weight: 54.4316 kg

DRUGS (1)
  1. VALACYCLOVIR [Suspect]
     Indication: ORAL HERPES
     Dosage: 500MG 1X DAILY
     Dates: start: 20100820, end: 20101025

REACTIONS (4)
  - CONDITION AGGRAVATED [None]
  - DRUG INEFFECTIVE [None]
  - ORAL HERPES [None]
  - PRODUCT SUBSTITUTION ISSUE [None]
